FAERS Safety Report 19412224 (Version 4)
Quarter: 2023Q2

REPORT INFORMATION
  Report Type: Spontaneous
  Country: DE (occurrence: DE)
  Receive Date: 20210614
  Receipt Date: 20230519
  Transmission Date: 20230722
  Serious: Yes (Life-Threatening, Hospitalization, Other)
  Sender: FDA-Public Use
  Company Number: DE-TORRENT-00020432

PATIENT
  Age: 26 Year
  Sex: Male
  Weight: 80 kg

DRUGS (2)
  1. AMLODIPINE [Suspect]
     Active Substance: AMLODIPINE BESYLATE
     Indication: Suicide attempt
     Dosage: TOTAL
     Route: 048
  2. RAMIPRIL [Suspect]
     Active Substance: RAMIPRIL
     Indication: Suicide attempt
     Dosage: TOTAL
     Route: 048

REACTIONS (10)
  - Suicide attempt [Unknown]
  - Intentional overdose [Recovered/Resolved]
  - Vascular resistance systemic decreased [Recovered/Resolved]
  - Circulatory collapse [Recovered/Resolved]
  - Pulmonary congestion [Recovered/Resolved]
  - Atrial fibrillation [Recovered/Resolved]
  - Toxicity to various agents [Recovered/Resolved]
  - Renal impairment [Recovered/Resolved]
  - Distributive shock [Recovered/Resolved]
  - Pleural effusion [Recovered/Resolved]
